FAERS Safety Report 21094506 (Version 1)
Quarter: 2022Q3

REPORT INFORMATION
  Report Type: Spontaneous
  Country: US (occurrence: None)
  Receive Date: 20220715
  Receipt Date: 20220715
  Transmission Date: 20221026
  Serious: No
  Sender: FDA-Public Use
  Company Number: None

PATIENT
  Sex: Female

DRUGS (1)
  1. AMBRISENTAN [Suspect]
     Active Substance: AMBRISENTAN
     Dosage: FREQUENCY : DAILY;?
     Route: 048

REACTIONS (7)
  - Rash [None]
  - Dizziness [None]
  - Oral herpes [None]
  - Renal disorder [None]
  - Derealisation [None]
  - Animal bite [None]
  - Impaired healing [None]
